FAERS Safety Report 7930264-9 (Version None)
Quarter: 2011Q4

REPORT INFORMATION
  Report Type: 
  Country: None (occurrence: None)
  Receive Date: 20111117
  Receipt Date: 20111104
  Transmission Date: 20120403
  Serious: Yes (Death)
  Sender: FDA-Public Use
  Company Number: 1000024587

PATIENT
  Age: 82 Year
  Sex: Male

DRUGS (22)
  1. COMTAN (ENTACAPONE) (ENTACAPONE) [Concomitant]
  2. PURSENNID (SENNA ALEXANDRINA LEAF) (SENNA ALEXANDRINA LEAF) [Concomitant]
  3. MEMANTINE HYDROCHLORIDE [Suspect]
     Indication: DEMENTIA WITH LEWY BODIES
     Dosage: 5 MG (5 MG, 1 IN 1 D), ORAL
     Route: 048
     Dates: start: 20110623, end: 20110626
  4. NEODOPASTON (LEVODOPA, CARBIDOPA) (LEVODOPA, CARBIDOPA) [Concomitant]
  5. BI_SIFROL (PRAMIPEXOLE DIHYDROCHLORIDE) (PRAMIPEXOLE DIHYDROCHLORIDE) [Concomitant]
  6. DEPAS (ETIZOLAM) (ETIZOLAM) [Concomitant]
  7. ABALNATE (MIDODRINE HYDROCHLORIDE) (TABLETS) (MIDODRINE HYDROCHLORIDE) [Concomitant]
  8. ALDACTONE A (SPIRONOLACTONE) (TABLETS) (SPIRONOLACTONE) [Concomitant]
  9. ASPIRIN [Concomitant]
  10. SERMION (NICERGOLINE) (TABLETS) (NICERGOLINE) [Concomitant]
  11. PERGOLIDE MESILATE (PERGOLIDE MESILATE) (TABLETS) (PERGOLIDE MESILATE) [Concomitant]
  12. MENESIT (LEVODOPA, CARBIDOPA HYDRATE) (TABLETS) (LEVODOPA, CARBIDOPA [Concomitant]
  13. BENZALIN (NITRAZEPAM) (TABLETS) (NITRAZEPAM) [Concomitant]
  14. HARNAL D (TAMSULOSIN HYDROCHLORIDE) (TAMSULOSIN HYDROCHLORIDE) [Concomitant]
  15. PANTOSIN (PANTETHENATE) (PANTETHENATE) [Concomitant]
  16. LASIX [Concomitant]
  17. MERISLON (BETHAHISTINE MESILATE) (BETAHISTINE MESILATE) [Concomitant]
  18. METLIGINE (MIDODRINE HYDROCHLORIDE) (MIDODRINE HYDROCHLORIDE) [Concomitant]
  19. EVIPROSTAT (PIPSISSEWA EXTRACT_JAPANESE ASPEN EXTRACT COMBINED DRUG) ( [Concomitant]
  20. SENNOSIDE (SENNOSIDE A+B) (12 MILLIGRAM, TABLETS) (SENNOSIDE A+B) [Concomitant]
  21. CEPHADOL (DIFENIDOL HYDROCHLORIDE) (TABLETS) (DIFENIDOL HYDROCHLORIDE) [Concomitant]
  22. TAMSLON (TAMSULOSIN HYDROCHLORIDE) (TABLETS) (TAMSULOSIN HYDROCHLORIDE [Concomitant]

REACTIONS (1)
  - MYOCARDIAL INFARCTION [None]
